FAERS Safety Report 12606249 (Version 1)
Quarter: 2016Q3

REPORT INFORMATION
  Report Type: Spontaneous
  Country: GB (occurrence: GB)
  Receive Date: 20160729
  Receipt Date: 20160729
  Transmission Date: 20161109
  Serious: Yes (Hospitalization)
  Sender: FDA-Public Use
  Company Number: GB-ACTAVIS-2016-16429

PATIENT
  Age: 81 Year
  Sex: Male

DRUGS (2)
  1. MORPHINE (UNKNOWN) [Suspect]
     Active Substance: MORPHINE
     Indication: PRODUCT USED FOR UNKNOWN INDICATION
     Dosage: 5 MG, TOTAL
     Route: 065
     Dates: start: 20160314, end: 20160315
  2. CODEINE (UNKNOWN) [Suspect]
     Active Substance: CODEINE
     Indication: PRODUCT USED FOR UNKNOWN INDICATION
     Dosage: 390 MG, TOTAL ( REQUIRED DOSE 30 MG FOUR TIMES DAILY)
     Route: 048
     Dates: start: 20160314, end: 20160315

REACTIONS (9)
  - Shock [Unknown]
  - Hypoxia [Unknown]
  - Aspiration [Unknown]
  - Vomiting [Unknown]
  - Depressed level of consciousness [Recovering/Resolving]
  - Renal failure [Unknown]
  - Cardiac disorder [Unknown]
  - Unresponsive to stimuli [Recovering/Resolving]
  - Drug administration error [Unknown]
